FAERS Safety Report 18860934 (Version 3)
Quarter: 2021Q1

REPORT INFORMATION
  Report Type: Spontaneous
  Country: ZA (occurrence: ZA)
  Receive Date: 20210208
  Receipt Date: 20210217
  Transmission Date: 20210420
  Serious: Yes (Death, Hospitalization, Other)
  Sender: FDA-Public Use
  Company Number: ZA-CELGENEUS-ZAF-20210201331

PATIENT
  Sex: Male

DRUGS (1)
  1. REVLIMID [Suspect]
     Active Substance: LENALIDOMIDE
     Indication: PLASMA CELL MYELOMA
     Dosage: 10 MILLIGRAM
     Route: 048
     Dates: start: 202001, end: 202011

REACTIONS (5)
  - Prostate cancer [Fatal]
  - Fall [Fatal]
  - Femur fracture [Fatal]
  - Myelosuppression [Fatal]
  - Asthenia [Fatal]
